FAERS Safety Report 4928680-2 (Version None)
Quarter: 2006Q1

REPORT INFORMATION
  Report Type: 
  Country: None (occurrence: None)
  Receive Date: 20060301
  Receipt Date: 20060223
  Transmission Date: 20060701
  Serious: Yes (Hospitalization)
  Sender: FDA-Public Use
  Company Number: US-JNJFOC-20051102614

PATIENT
  Sex: Male

DRUGS (17)
  1. INFLIXIMAB [Suspect]
     Indication: RHEUMATOID ARTHRITIS
     Route: 042
  2. HYZAAR [Concomitant]
  3. HYZAAR [Concomitant]
  4. LANOXIN [Concomitant]
  5. LASIX [Concomitant]
  6. METHOTREXATE [Concomitant]
  7. MULTI-VITAMIN [Concomitant]
  8. MULTI-VITAMIN [Concomitant]
  9. MULTI-VITAMIN [Concomitant]
  10. MULTI-VITAMIN [Concomitant]
  11. MULTI-VITAMIN [Concomitant]
  12. MULTI-VITAMIN [Concomitant]
  13. MULTI-VITAMIN [Concomitant]
  14. MULTI-VITAMIN [Concomitant]
  15. TOPROL [Concomitant]
  16. TYLENOL (CAPLET) [Concomitant]
  17. WARFARIN SODIUM [Concomitant]

REACTIONS (5)
  - ACUTE MYOCARDIAL INFARCTION [None]
  - ATRIAL FIBRILLATION [None]
  - CARDIAC FAILURE [None]
  - CORONARY ARTERY DISEASE [None]
  - PULMONARY OEDEMA [None]
